FAERS Safety Report 5038117-3 (Version None)
Quarter: 2006Q2

REPORT INFORMATION
  Report Type: 
  Country: None (occurrence: None)
  Receive Date: 20060622
  Receipt Date: 20060609
  Transmission Date: 20061013
  Serious: Yes (Hospitalization)
  Sender: FDA-Public Use
  Company Number: 2006074385

PATIENT
  Age: 67 Year
  Sex: Male

DRUGS (8)
  1. SUTENT [Suspect]
     Indication: RENAL CELL CARCINOMA STAGE UNSPECIFIED
     Dosage: 25 MG (25 MG, CYCLIC), ORAL
     Route: 048
     Dates: start: 20060331
  2. TINZAPARIN SODIUM               (HEPARIN-FRACTION, SODIUM SALT) [Concomitant]
  3. MORPHINE [Concomitant]
  4. ORAMORPH SR [Concomitant]
  5. ALLOPURINOL [Concomitant]
  6. METOCLOPRAMIDE [Concomitant]
  7. ENSURE             (AMINO ACIDS NOS, MINERALS NOS, VITAMINS NOS) [Concomitant]
  8. DICLOFENAC SODIUM [Concomitant]

REACTIONS (2)
  - FATIGUE [None]
  - PYREXIA [None]
